FAERS Safety Report 15277113 (Version 1)
Quarter: 2018Q3

REPORT INFORMATION
  Report Type: Spontaneous
  Country: US (occurrence: US)
  Receive Date: 20180814
  Receipt Date: 20180814
  Transmission Date: 20181010
  Serious: Yes (Disabling)
  Sender: FDA-Public Use
  Company Number: US-MIST-TIR-2018-0806

PATIENT
  Age: 61 Year
  Sex: Female
  Weight: 101.24 kg

DRUGS (5)
  1. TIROSINT [Suspect]
     Active Substance: LEVOTHYROXINE SODIUM
     Indication: THYROIDECTOMY
     Dosage: 100MCG DAILY
     Route: 048
     Dates: start: 2017, end: 201710
  2. TIROSINT [Suspect]
     Active Substance: LEVOTHYROXINE SODIUM
     Dosage: 88MCG DAILY
     Route: 048
     Dates: start: 20180731
  3. TIROSINT [Suspect]
     Active Substance: LEVOTHYROXINE SODIUM
     Indication: THYROIDECTOMY
     Dosage: 88MCG DAILY
     Route: 048
     Dates: start: 201710, end: 2018
  4. UNSPECIFIED BLOOD PRESSURE PILL [Concomitant]
     Indication: BLOOD PRESSURE ABNORMAL
     Dosage: ONE PILL EACH NIGHT
  5. TIROSINT [Suspect]
     Active Substance: LEVOTHYROXINE SODIUM
     Dosage: 100MCG DAILY
     Route: 048
     Dates: start: 20180725, end: 20180729

REACTIONS (8)
  - Feeling abnormal [Recovered/Resolved]
  - Tunnel vision [Unknown]
  - Loss of personal independence in daily activities [Unknown]
  - Dizziness [Unknown]
  - Drug level below therapeutic [Unknown]
  - Thyroid function test abnormal [Unknown]
  - Product quality issue [Unknown]
  - Tremor [Unknown]

NARRATIVE: CASE EVENT DATE: 2018
